FAERS Safety Report 16011926 (Version 1)
Quarter: 2019Q1

REPORT INFORMATION
  Report Type: Spontaneous
  Country: US (occurrence: US)
  Receive Date: 20190226
  Receipt Date: 20190226
  Transmission Date: 20190418
  Serious: Yes (Hospitalization)
  Sender: FDA-Public Use
  Company Number: None

PATIENT
  Age: 40 Year
  Sex: Female

DRUGS (22)
  1. ABILIFY [Concomitant]
     Active Substance: ARIPIPRAZOLE
  2. ASA [Concomitant]
     Active Substance: ASPIRIN
  3. TRICOR [Concomitant]
     Active Substance: FENOFIBRATE
  4. OMEPRAZOLE. [Concomitant]
     Active Substance: OMEPRAZOLE
  5. VITAMIN B12 [Concomitant]
     Active Substance: CYANOCOBALAMIN
  6. DDAVP [Suspect]
     Active Substance: DESMOPRESSIN ACETATE
     Indication: DIABETES INSIPIDUS
     Route: 045
  7. MIDODRINE [Concomitant]
     Active Substance: MIDODRINE
  8. TRAZODONE [Concomitant]
     Active Substance: TRAZODONE HYDROCHLORIDE
  9. SUDAFED [Concomitant]
     Active Substance: PSEUDOEPHEDRINE HYDROCHLORIDE
  10. FOLIC ACID. [Concomitant]
     Active Substance: FOLIC ACID
  11. CLARITIN [Concomitant]
     Active Substance: LORATADINE
  12. MAG OX [Concomitant]
     Active Substance: MAGNESIUM OXIDE
  13. ZOCOR [Concomitant]
     Active Substance: SIMVASTATIN
  14. BENZONATATE. [Concomitant]
     Active Substance: BENZONATATE
  15. LEXAPRO [Concomitant]
     Active Substance: ESCITALOPRAM OXALATE
  16. DITROPAN [Concomitant]
     Active Substance: OXYBUTYNIN CHLORIDE
  17. RISPERDAL [Concomitant]
     Active Substance: RISPERIDONE
  18. JANUVIA [Concomitant]
     Active Substance: SITAGLIPTIN PHOSPHATE
  19. PROAIR HFA [Concomitant]
     Active Substance: ALBUTEROL SULFATE
  20. LORAZEPAM. [Concomitant]
     Active Substance: LORAZEPAM
  21. ACTOS [Concomitant]
     Active Substance: PIOGLITAZONE HYDROCHLORIDE
  22. ADVIL [Concomitant]
     Active Substance: IBUPROFEN

REACTIONS (2)
  - Fluid retention [None]
  - Hyponatraemia [None]

NARRATIVE: CASE EVENT DATE: 20181030
